FAERS Safety Report 5161663-9 (Version None)
Quarter: 2006Q4

REPORT INFORMATION
  Report Type: 
  Country: None (occurrence: None)
  Receive Date: 20061130
  Receipt Date: 20060406
  Transmission Date: 20070319
  Serious: No
  Sender: FDA-Public Use
  Company Number: US-BRISTOL-MYERS SQUIBB COMPANY-13338884

PATIENT
  Age: 68 Year
  Sex: Male
  Weight: 89 kg

DRUGS (11)
  1. GLUCOPHAGE XR [Suspect]
     Indication: DIABETES MELLITUS
     Dates: start: 20050701
  2. GLUCOPHAGE [Suspect]
     Indication: DIABETES MELLITUS
     Dates: end: 20040801
  3. LANTUS [Concomitant]
  4. HUMULIN 70/30 [Concomitant]
  5. LISINOPRIL [Concomitant]
  6. METOPROLOL SUCCINATE [Concomitant]
  7. PLAVIX [Concomitant]
  8. SYNTHROID [Concomitant]
  9. DIOVAN [Concomitant]
  10. VALIUM [Concomitant]
  11. EFFEXOR XR [Concomitant]

REACTIONS (3)
  - ABDOMINAL DISCOMFORT [None]
  - BLOOD GLUCOSE FLUCTUATION [None]
  - DIARRHOEA [None]
